FAERS Safety Report 15552624 (Version 4)
Quarter: 2019Q2

REPORT INFORMATION
  Report Type: Report from Study
  Country: RO (occurrence: RO)
  Receive Date: 20181025
  Receipt Date: 20190404
  Transmission Date: 20190711
  Serious: Yes (Life-Threatening, Hospitalization, Disabling)
  Sender: FDA-Public Use
  Company Number: RO-EXELIXIS-XL18418015636

PATIENT
  Age: 28 Year
  Sex: Female
  Weight: 37 kg

DRUGS (10)
  1. BLINDED XL184 [Suspect]
     Active Substance: CABOZANTINIB
     Indication: MEDULLARY THYROID CANCER
     Dosage: 140 OR 60  MG, QD
     Route: 048
     Dates: start: 20180626, end: 20180821
  2. BORAX GLYCERIN [Concomitant]
  3. KETOPROFEN. [Concomitant]
     Active Substance: KETOPROFEN
  4. DEXAMETHASONE. [Concomitant]
     Active Substance: DEXAMETHASONE
  5. BISOPROLOL [Concomitant]
     Active Substance: BISOPROLOL
  6. METAMIZOLE [Concomitant]
     Active Substance: METAMIZOLE
  7. LEVOTHYROXINE. [Concomitant]
     Active Substance: LEVOTHYROXINE
  8. GABAPENTIN. [Concomitant]
     Active Substance: GABAPENTIN
  9. BLINDED XL184 [Suspect]
     Active Substance: CABOZANTINIB
     Indication: MEDULLARY THYROID CANCER
     Dosage: 140 OR 60  MG, QD
     Route: 048
     Dates: start: 20180626, end: 20180821
  10. MORPHINE SULFATE. [Concomitant]
     Active Substance: MORPHINE SULFATE

REACTIONS (2)
  - Large intestine perforation [Recovered/Resolved with Sequelae]
  - Arthralgia [Recovered/Resolved with Sequelae]

NARRATIVE: CASE EVENT DATE: 20180712
